FAERS Safety Report 7291428-3 (Version None)
Quarter: 2011Q1

REPORT INFORMATION
  Report Type: 
  Country: None (occurrence: None)
  Receive Date: 20110214
  Receipt Date: 20110204
  Transmission Date: 20110831
  Serious: Yes (Other)
  Sender: FDA-Public Use
  Company Number: B0699593A

PATIENT
  Age: 7 Year
  Sex: Male
  Weight: 29 kg

DRUGS (1)
  1. ALBUTEROL [Suspect]
     Dosage: 400MCG PER DAY
     Route: 055

REACTIONS (6)
  - WHEEZING [None]
  - BRONCHOSPASM [None]
  - HYPOXIA [None]
  - COUGH [None]
  - FORCED EXPIRATORY VOLUME DECREASED [None]
  - OXYGEN SATURATION DECREASED [None]
